FAERS Safety Report 19974377 (Version 6)
Quarter: 2022Q2

REPORT INFORMATION
  Report Type: Report from Study
  Country: PL (occurrence: PL)
  Receive Date: 20211020
  Receipt Date: 20220610
  Transmission Date: 20220721
  Serious: Yes (Life-Threatening)
  Sender: FDA-Public Use
  Company Number: PL-EXELIXIS-XL18421045315

PATIENT

DRUGS (17)
  1. CABOZANTINIB [Suspect]
     Active Substance: CABOZANTINIB
     Indication: Renal cell carcinoma
     Dosage: 60 MG, QD
     Route: 048
     Dates: start: 20210225
  2. CABOZANTINIB [Suspect]
     Active Substance: CABOZANTINIB
     Dosage: 40 MG
     Route: 048
  3. CABOZANTINIB [Suspect]
     Active Substance: CABOZANTINIB
     Dosage: UNK (DOSE REDUCED)
     Route: 048
  4. ATEZOLIZUMAB [Suspect]
     Active Substance: ATEZOLIZUMAB
     Indication: Renal cell carcinoma
     Dosage: 1200 MG, Q3WEEKS
     Route: 042
     Dates: start: 20210225
  5. ENOXAPARIN SODIUM [Concomitant]
     Active Substance: ENOXAPARIN SODIUM
     Indication: Prophylaxis
     Dosage: 0.8 MG, BID
     Route: 030
     Dates: start: 2017
  6. ENOXAPARIN SODIUM [Concomitant]
     Active Substance: ENOXAPARIN SODIUM
     Indication: Haematuria
     Dosage: 60 MG, QD
     Route: 030
     Dates: start: 20220226, end: 20220302
  7. ENOXAPARIN SODIUM [Concomitant]
     Active Substance: ENOXAPARIN SODIUM
     Dosage: 60 MG, QD
     Route: 030
     Dates: start: 20220303
  8. CONCORAM [Concomitant]
     Indication: Hypertension
     Dosage: 15 MG, QD
     Route: 048
     Dates: start: 2010
  9. METOPROLOL TARTRATE [Concomitant]
     Active Substance: METOPROLOL TARTRATE
     Indication: Hypertension
     Dosage: 50 MG, QD
     Dates: start: 2010
  10. EUTHYROX [Concomitant]
     Active Substance: LEVOTHYROXINE SODIUM
     Indication: Hypothyroidism
     Dosage: 40 MG, QD
     Route: 048
     Dates: start: 20210318
  11. EUTHYROX [Concomitant]
     Active Substance: LEVOTHYROXINE SODIUM
     Dosage: 50 UG, BID
     Route: 048
     Dates: start: 20210611, end: 20211012
  12. EUTHYROX [Concomitant]
     Active Substance: LEVOTHYROXINE SODIUM
     Dosage: EUTHYROX N75 (75 ?G,1 IN 1 D)
     Route: 048
     Dates: start: 20211013, end: 20211019
  13. EUTHYROX [Concomitant]
     Active Substance: LEVOTHYROXINE SODIUM
     Dosage: EUTHYROX N100 (100 ?G,1 IN 1 D)
     Route: 048
     Dates: start: 20211020
  14. ENOXAPARIN SODIUM [Concomitant]
     Active Substance: ENOXAPARIN SODIUM
     Indication: Pulmonary embolism
     Dosage: 80 MG, BID
     Route: 030
     Dates: start: 20210429, end: 20220225
  15. LOPERAMIDE [Concomitant]
     Active Substance: LOPERAMIDE
     Indication: Diarrhoea
     Dosage: 40 MG, QD (AS REQUIRED)
     Route: 048
     Dates: start: 20210601
  16. MEGESTROLI ACETAS [Concomitant]
     Indication: Weight decreased
     Dosage: 40 MG, QD
     Route: 048
     Dates: start: 20210610
  17. MEGACE [Concomitant]
     Active Substance: MEGESTROL ACETATE
     Indication: Decreased appetite
     Dosage: 400 MG, QD
     Route: 048
     Dates: start: 20210611

REACTIONS (1)
  - Hypomagnesaemia [Not Recovered/Not Resolved]

NARRATIVE: CASE EVENT DATE: 20211014
